FAERS Safety Report 7179446-7 (Version None)
Quarter: 2010Q4

REPORT INFORMATION
  Report Type: 
  Country: None (occurrence: None)
  Receive Date: 20101221
  Receipt Date: 20101207
  Transmission Date: 20110411
  Serious: Yes (Hospitalization, Other)
  Sender: FDA-Public Use
  Company Number: PHHY2010JP51155

PATIENT
  Sex: Male
  Weight: 61 kg

DRUGS (3)
  1. VOLTAREN [Suspect]
     Indication: PAIN
     Dosage: PRN
     Route: 054
     Dates: start: 20100501, end: 20100624
  2. LOXONIN [Suspect]
     Indication: PAIN
     Dosage: 60 MG, TID
     Route: 048
     Dates: start: 20100501, end: 20100624
  3. HYPEN [Suspect]
     Indication: PAIN
     Dosage: 3 DF, UNK
     Route: 048
     Dates: start: 20100501, end: 20100624

REACTIONS (4)
  - MULTIPLE MYELOMA [None]
  - RENAL FAILURE ACUTE [None]
  - UPPER RESPIRATORY TRACT INFECTION [None]
  - UPPER RESPIRATORY TRACT INFLAMMATION [None]
